FAERS Safety Report 7945214-9 (Version None)
Quarter: 2011Q4

REPORT INFORMATION
  Report Type: 
  Country: None (occurrence: None)
  Receive Date: 20111129
  Receipt Date: 20110331
  Transmission Date: 20120403
  Serious: No
  Sender: FDA-Public Use
  Company Number: US-GLAXOSMITHKLINE-A0920890A

PATIENT
  Age: 81 Year
  Sex: Female

DRUGS (7)
  1. PRILOSEC [Concomitant]
  2. PROAIR HFA [Concomitant]
  3. ZEGERID [Concomitant]
  4. FLOVENT [Suspect]
     Indication: ASTHMA
     Dosage: 1PUFF TWICE PER DAY
     Route: 055
     Dates: start: 20110301, end: 20110301
  5. XANAX [Concomitant]
  6. OXYGEN [Concomitant]
  7. NEBULIZER [Concomitant]

REACTIONS (2)
  - DRUG INEFFECTIVE [None]
  - DYSPNOEA [None]
